FAERS Safety Report 21709516 (Version 1)
Quarter: 2022Q4

REPORT INFORMATION
  Report Type: Spontaneous
  Country: DE (occurrence: DE)
  Receive Date: 20221210
  Receipt Date: 20221210
  Transmission Date: 20230113
  Serious: Yes (Congenital Anomaly)
  Sender: FDA-Public Use
  Company Number: DE-002147023-NVSC2022DE282179

PATIENT
  Age: 1 Day
  Sex: Male
  Weight: 3.81 kg

DRUGS (2)
  1. METOPROLOL [Suspect]
     Active Substance: METOPROLOL
     Indication: Foetal exposure during pregnancy
     Dosage: MATERNAL DOSE: 25 MG/D, FROM 03 JUL 2021 TO 12 APR 2022
     Route: 064
  2. LEVOTHYROXINE SODIUM [Concomitant]
     Active Substance: LEVOTHYROXINE SODIUM
     Indication: Foetal exposure during pregnancy
     Dosage: MATERNAL DOSE: 75 ?G/D, FROM 03 JUL 2021 TO 12 APR 2022
     Route: 064

REACTIONS (4)
  - Cardiac septal hypertrophy [Recovered/Resolved]
  - Infantile apnoea [Recovered/Resolved]
  - Atrial septal defect [Unknown]
  - Foetal exposure during pregnancy [Unknown]

NARRATIVE: CASE EVENT DATE: 20220401
